FAERS Safety Report 16744849 (Version 1)
Quarter: 2019Q4

REPORT INFORMATION
  Report Type: Spontaneous
  Country: US (occurrence: US)
  Receive Date: 20190826
  Receipt Date: 20190826
  Transmission Date: 20200122
  Serious: Yes (Other)
  Sender: FDA-Public Use
  Company Number: None

PATIENT
  Age: 16 Year
  Sex: Female
  Weight: 64.8 kg

DRUGS (1)
  1. QBREXZA [Suspect]
     Active Substance: GLYCOPYRRONIUM TOSYLATE
     Indication: HYPERHIDROSIS
     Dosage: ?          QUANTITY:1 1 TOWELETTE;?
     Route: 061
     Dates: start: 20190819, end: 20190820

REACTIONS (3)
  - Mydriasis [None]
  - Vision blurred [None]
  - Therapy cessation [None]

NARRATIVE: CASE EVENT DATE: 20190820
